FAERS Safety Report 17529064 (Version 1)
Quarter: 2020Q1

REPORT INFORMATION
  Report Type: Spontaneous
  Country: US (occurrence: US)
  Receive Date: 20200311
  Receipt Date: 20200311
  Transmission Date: 20200409
  Serious: Yes (Other)
  Sender: FDA-Public Use
  Company Number: US-MYLANLABS-2020M1027638

PATIENT
  Age: 19 Year
  Sex: Male

DRUGS (2)
  1. CLOZAPINE. [Suspect]
     Active Substance: CLOZAPINE
     Indication: SCHIZOPHRENIA
     Dosage: THE DOSE HAD BEEN TITRATED EVERY THIRD DAY
     Route: 065
  2. OLANZAPINE. [Concomitant]
     Active Substance: OLANZAPINE
     Indication: SCHIZOPHRENIA
     Dosage: 15 MILLIGRAM, QOD
     Route: 065

REACTIONS (2)
  - Myocarditis [Recovered/Resolved]
  - Ventricular hypokinesia [Recovered/Resolved]
